FAERS Safety Report 9787248 (Version 3)
Quarter: 2014Q1

REPORT INFORMATION
  Report Type: Spontaneous
  Country: US (occurrence: US)
  Receive Date: 20131229
  Receipt Date: 20140206
  Transmission Date: 20141002
  Serious: No
  Sender: FDA-Public Use
  Company Number: US-009507513-1312USA011460

PATIENT
  Sex: Female

DRUGS (1)
  1. JANUMET XR [Suspect]
     Indication: DIABETES MELLITUS
     Dosage: TWO TABLETS ONCE DAILY
     Route: 048
     Dates: start: 20130705

REACTIONS (5)
  - Paraesthesia oral [Unknown]
  - Nasal disorder [Unknown]
  - Product solubility abnormal [Unknown]
  - Product odour abnormal [Unknown]
  - Product taste abnormal [Unknown]
